FAERS Safety Report 19021175 (Version 6)
Quarter: 2025Q2

REPORT INFORMATION
  Report Type: Report from Study
  Country: DE (occurrence: DE)
  Receive Date: 20210317
  Receipt Date: 20250610
  Transmission Date: 20250717
  Serious: Yes (Hospitalization)
  Sender: ROCHE
  Company Number: DE-ROCHE-2786654

PATIENT
  Age: 34 Year
  Sex: Female
  Weight: 56 kg

DRUGS (8)
  1. OCREVUS [Suspect]
     Active Substance: OCRELIZUMAB
     Indication: Relapsing multiple sclerosis
     Route: 042
     Dates: start: 20190528, end: 20190611
  2. OCREVUS [Suspect]
     Active Substance: OCRELIZUMAB
     Route: 042
     Dates: start: 20191125
  3. CHOLECALCIFEROL [Concomitant]
     Active Substance: CHOLECALCIFEROL
     Indication: Vitamin D deficiency
     Route: 048
     Dates: end: 20220308
  4. LEVOTHYROXINE SODIUM [Concomitant]
     Active Substance: LEVOTHYROXINE SODIUM
     Indication: Hypothyroidism
     Route: 048
     Dates: end: 202111
  5. TRIAMCINOLONE ACETONIDE [Concomitant]
     Active Substance: TRIAMCINOLONE ACETONIDE
     Route: 042
     Dates: start: 20210514, end: 20210514
  6. BioNTech COVID- 19 vaccine [Concomitant]
     Indication: COVID-19 prophylaxis
     Route: 030
     Dates: start: 20220208, end: 20220208
  7. BioNTech COVID- 19 vaccine [Concomitant]
     Route: 030
     Dates: start: 20210822, end: 20210822
  8. BioNTech COVID- 19 vaccine [Concomitant]
     Route: 030
     Dates: start: 20210913, end: 20210913

REACTIONS (1)
  - Herpes zoster disseminated [Recovered/Resolved]

NARRATIVE: CASE EVENT DATE: 20210216
